FAERS Safety Report 5530102-8 (Version None)
Quarter: 2007Q4

REPORT INFORMATION
  Report Type: 
  Country: None (occurrence: None)
  Receive Date: 20071130
  Receipt Date: 20071126
  Transmission Date: 20080405
  Serious: Yes (Other)
  Sender: FDA-Public Use
  Company Number: PHEH2005US13774

PATIENT
  Age: 67 Year
  Sex: Female

DRUGS (5)
  1. ESTRADERM [Suspect]
     Indication: MENOPAUSAL SYMPTOMS
     Dosage: 0.05 MG/DAY, TIWCE WEEKLY
     Route: 062
     Dates: start: 19910401, end: 19940101
  2. PROVERA [Suspect]
     Indication: HORMONE REPLACEMENT THERAPY
     Dosage: 10 MG, UNK
     Route: 048
     Dates: start: 19830601, end: 19950801
  3. PREMPRO [Suspect]
     Indication: HORMONE REPLACEMENT THERAPY
     Route: 048
     Dates: start: 19950101, end: 19960101
  4. PREMARIN [Suspect]
     Indication: MENOPAUSAL SYMPTOMS
     Dosage: .625 AND .3 MG, UNK
     Route: 048
     Dates: start: 19861001, end: 19950801
  5. ESTRACE [Suspect]
     Indication: MENOPAUSAL SYMPTOMS
     Dosage: UNK, 1-2 WEEKLY
     Route: 061
     Dates: start: 19881101, end: 19910301

REACTIONS (25)
  - ASPIRATION PLEURAL CAVITY [None]
  - BIOPSY BREAST ABNORMAL [None]
  - BREAST CANCER [None]
  - BREAST CANCER IN SITU [None]
  - BREAST RECONSTRUCTION [None]
  - CHOLELITHIASIS [None]
  - CULDOPLASTY [None]
  - DYSPNOEA [None]
  - HAEMANGIOMA OF LIVER [None]
  - HYSTERECTOMY [None]
  - INJURY [None]
  - MASTECTOMY [None]
  - MITRAL VALVE PROLAPSE [None]
  - OSTEOPENIA [None]
  - PERICARDIAL EFFUSION [None]
  - PLASTIC SURGERY [None]
  - PLEURAL EFFUSION [None]
  - PLEURISY [None]
  - PNEUMONIA [None]
  - SALPINGO-OOPHORECTOMY BILATERAL [None]
  - UTERINE DILATION AND CURETTAGE [None]
  - UTERINE ENLARGEMENT [None]
  - UTERINE HAEMORRHAGE [None]
  - UTERINE LEIOMYOMA [None]
  - VAGINOPLASTY [None]
